FAERS Safety Report 21992006 (Version 5)
Quarter: 2023Q1

REPORT INFORMATION
  Report Type: Report from Study
  Country: US (occurrence: US)
  Receive Date: 20230214
  Receipt Date: 20230330
  Transmission Date: 20230417
  Serious: Yes (Hospitalization)
  Sender: FDA-Public Use
  Company Number: US-JNJFOC-20230221096

PATIENT
  Age: 57 Year
  Sex: Female
  Weight: 88.2 kg

DRUGS (3)
  1. EPOPROSTENOL SODIUM [Suspect]
     Active Substance: EPOPROSTENOL SODIUM
     Indication: Pulmonary arterial hypertension
     Route: 042
  2. LETAIRIS [Concomitant]
     Active Substance: AMBRISENTAN
  3. ADEMPAS [Concomitant]
     Active Substance: RIOCIGUAT

REACTIONS (8)
  - Device occlusion [Unknown]
  - Complication associated with device [Unknown]
  - Underdose [Unknown]
  - Sinusitis [Unknown]
  - Lower respiratory tract infection [Unknown]
  - Product administration interrupted [Unknown]
  - Dyspnoea [Unknown]
  - Back pain [Unknown]

NARRATIVE: CASE EVENT DATE: 20230207
